FAERS Safety Report 9000100 (Version 2)
Quarter: 2013Q1

REPORT INFORMATION
  Report Type: Spontaneous
  Country: US (occurrence: US)
  Receive Date: 20130102
  Receipt Date: 20130125
  Transmission Date: 20140127
  Serious: Yes (Hospitalization)
  Sender: FDA-Public Use
  Company Number: US-JNJFOC-20121210681

PATIENT
  Age: 77 None
  Sex: Female
  Weight: 58.51 kg

DRUGS (8)
  1. XARELTO [Suspect]
     Indication: ANTICOAGULANT THERAPY
     Route: 048
     Dates: start: 20121201, end: 20121202
  2. LISINOPRIL [Concomitant]
     Indication: BLOOD PRESSURE
     Route: 065
  3. SPIRONOLACTONE [Concomitant]
     Route: 065
  4. TRIAMTERENE HYDROCHLOROTHIAZIDE [Concomitant]
     Route: 065
  5. AMIODARONE HYDROCHLORIDE [Concomitant]
     Route: 065
  6. CARVEDILOL [Concomitant]
     Route: 065
  7. ZETIA [Concomitant]
     Route: 065
  8. CRESTOR [Concomitant]
     Route: 065

REACTIONS (5)
  - Hypersensitivity [Not Recovered/Not Resolved]
  - Epistaxis [Recovered/Resolved]
  - International normalised ratio increased [Unknown]
  - Cough [Not Recovered/Not Resolved]
  - Malaise [Not Recovered/Not Resolved]
